FAERS Safety Report 9425482 (Version 1)
Quarter: 2013Q3

REPORT INFORMATION
  Report Type: Spontaneous
  Country: ZA (occurrence: ZA)
  Receive Date: 20130729
  Receipt Date: 20130729
  Transmission Date: 20140515
  Serious: Yes (Other)
  Sender: FDA-Public Use
  Company Number: ZA-BRISTOL-MYERS SQUIBB COMPANY-19118918

PATIENT
  Sex: Female

DRUGS (1)
  1. HYDREA [Suspect]
     Dosage: 4 MONTHS THERAPY

REACTIONS (1)
  - Colitis [Unknown]
